FAERS Safety Report 6940277-1 (Version None)
Quarter: 2010Q3

REPORT INFORMATION
  Report Type: 
  Country: None (occurrence: None)
  Receive Date: 20100825
  Receipt Date: 20100816
  Transmission Date: 20110219
  Serious: Yes (Death, Hospitalization, Other)
  Sender: FDA-Public Use
  Company Number: PHFR2010IE01240

PATIENT
  Sex: Male

DRUGS (1)
  1. CLOZARIL [Suspect]
     Indication: SCHIZOPHRENIA
     Route: 048

REACTIONS (13)
  - AGITATION [None]
  - COLLAPSE OF LUNG [None]
  - DISORIENTATION [None]
  - LIVER FUNCTION TEST ABNORMAL [None]
  - LUNG NEOPLASM MALIGNANT [None]
  - MALAISE [None]
  - NEOPLASM PROGRESSION [None]
  - NON-SMALL CELL LUNG CANCER METASTATIC [None]
  - PNEUMONIA [None]
  - RESPIRATORY DISORDER [None]
  - RESPIRATORY RATE DECREASED [None]
  - SEDATION [None]
  - THROMBOCYTOPENIA [None]
